FAERS Safety Report 4662571-X (Version None)
Quarter: 2005Q2

REPORT INFORMATION
  Report Type: 
  Country: None (occurrence: None)
  Receive Date: 20050512
  Receipt Date: 20050412
  Transmission Date: 20051028
  Serious: Yes (Hospitalization)
  Sender: FDA-Public Use
  Company Number: PAR_0035_2005

PATIENT
  Age: 78 Year
  Sex: Male

DRUGS (8)
  1. VERAPAMIL [Suspect]
     Indication: ATRIAL FIBRILLATION
     Dosage: 120 MG QDAY PO
     Route: 048
     Dates: start: 20010801, end: 20030701
  2. VERAPAMIL [Suspect]
     Indication: CARDIAC FAILURE
     Dosage: 120 MG QDAY PO
     Route: 048
     Dates: start: 20010801, end: 20030701
  3. ENALAPRIL MALEATE [Suspect]
     Indication: ATRIAL FIBRILLATION
     Dosage: 5 MG QDAY PO
     Route: 048
     Dates: start: 20010801, end: 20030701
  4. ENALAPRIL MALEATE [Suspect]
     Indication: CARDIAC FAILURE
     Dosage: 5 MG QDAY PO
     Route: 048
     Dates: start: 20010801, end: 20030701
  5. SPIRONOLACTONE [Suspect]
     Indication: ATRIAL FIBRILLATION
     Dosage: 50 MG QDAY PO
     Route: 048
     Dates: start: 20010801, end: 20030701
  6. SPIRONOLACTONE [Suspect]
     Indication: CARDIAC FAILURE
     Dosage: 50 MG QDAY PO
     Route: 048
     Dates: start: 20010801, end: 20030701
  7. DIGOXIN [Suspect]
     Indication: ATRIAL FIBRILLATION
     Dosage: 0.3 MG QDAY PO
     Route: 048
     Dates: start: 20010801, end: 20030701
  8. DIGOXIN [Suspect]
     Indication: CARDIAC FAILURE
     Dosage: 0.3 MG QDAY PO
     Route: 048
     Dates: start: 20010801, end: 20030701

REACTIONS (6)
  - BLOOD CORTICOTROPHIN INCREASED [None]
  - HYPONATRAEMIA [None]
  - INAPPROPRIATE ANTIDIURETIC HORMONE SECRETION [None]
  - LOSS OF CONSCIOUSNESS [None]
  - MALAISE [None]
  - ORTHOSTATIC HYPOTENSION [None]
